FAERS Safety Report 7406803-3 (Version None)
Quarter: 2011Q2

REPORT INFORMATION
  Report Type: 
  Country: None (occurrence: None)
  Receive Date: 20110411
  Receipt Date: 20110401
  Transmission Date: 20111010
  Serious: Yes (Hospitalization)
  Sender: FDA-Public Use
  Company Number: BR-ASTRAZENECA-2011SE18911

PATIENT
  Age: 86 Year
  Sex: Female
  Weight: 62 kg

DRUGS (7)
  1. SEROQUEL [Suspect]
     Route: 048
     Dates: start: 20110301
  2. LIRIAN [Concomitant]
     Indication: DEMENTIA ALZHEIMER'S TYPE
     Route: 048
  3. SEROQUEL [Suspect]
     Indication: DEMENTIA ALZHEIMER'S TYPE
     Route: 048
     Dates: start: 20060101
  4. DIOVAN [Concomitant]
     Indication: HYPERTENSION
     Route: 048
  5. LYRICA [Concomitant]
     Indication: TRIGEMINAL NEURALGIA
     Route: 048
  6. ANLODIPINE [Concomitant]
     Indication: HYPERTENSION
     Route: 048
  7. SEROQUEL [Suspect]
     Route: 048
     Dates: start: 20060101

REACTIONS (5)
  - BLOOD PRESSURE INCREASED [None]
  - EATING DISORDER [None]
  - WEIGHT DECREASED [None]
  - DRUG PRESCRIBING ERROR [None]
  - DISEASE PROGRESSION [None]
